FAERS Safety Report 5621983-8 (Version None)
Quarter: 2008Q1

REPORT INFORMATION
  Report Type: 
  Country: None (occurrence: None)
  Receive Date: 20080211
  Receipt Date: 20080201
  Transmission Date: 20080703
  Serious: Yes (Other)
  Sender: FDA-Public Use
  Company Number: B0507293A

PATIENT
  Sex: Female

DRUGS (1)
  1. ADARTREL [Suspect]
     Route: 048

REACTIONS (2)
  - EYE MOVEMENT DISORDER [None]
  - SYNCOPE [None]
